FAERS Safety Report 23648421 (Version 1)
Quarter: 2024Q1

REPORT INFORMATION
  Report Type: Spontaneous
  Country: US (occurrence: US)
  Receive Date: 20240319
  Receipt Date: 20240319
  Transmission Date: 20240409
  Serious: No
  Sender: FDA-Public Use
  Company Number: US-CELGENE-USA-2016125575

PATIENT
  Age: 41 Year
  Sex: Female
  Weight: 144.22 kg

DRUGS (32)
  1. OTEZLA [Suspect]
     Active Substance: APREMILAST
     Indication: Psoriasis
     Dosage: 60 MG, BID
     Route: 048
     Dates: start: 20150801, end: 20160815
  2. OTEZLA [Suspect]
     Active Substance: APREMILAST
     Indication: Psoriatic arthropathy
  3. ALLEGRA [Concomitant]
     Active Substance: FEXOFENADINE HYDROCHLORIDE
     Indication: Hypersensitivity
     Dosage: 180 MILLIGRAM, BID
     Route: 048
     Dates: start: 20160619, end: 20170303
  4. AUGMENTIN [Concomitant]
     Active Substance: AMOXICILLIN\CLAVULANATE POTASSIUM
     Indication: Bronchitis
     Dosage: 825 MILLIGRAM, QD
     Route: 048
     Dates: start: 20170110, end: 20170120
  5. BENICAR [Concomitant]
     Active Substance: OLMESARTAN MEDOXOMIL
     Indication: Hypertension
     Dosage: 40 MILLIGRAM, QD
     Route: 048
     Dates: start: 20160619, end: 20160813
  6. CAFFEINE [Concomitant]
     Active Substance: CAFFEINE
     Dosage: 12 OUNCE, 5 TIMES/WK
     Route: 048
     Dates: start: 20160619, end: 20170303
  7. CELEXA [Concomitant]
     Active Substance: CITALOPRAM HYDROBROMIDE
     Indication: Anxiety
     Dosage: 30 MILLIGRAM, QD
     Route: 048
     Dates: start: 20161130, end: 20170303
  8. DIETARY SUPPLEMENT [Concomitant]
     Active Substance: DIETARY SUPPLEMENT
     Dosage: 2 PILL, QD
     Route: 048
     Dates: start: 20160826, end: 20160915
  9. DIAZEPAM [Concomitant]
     Active Substance: DIAZEPAM
     Indication: Anxiety
     Dosage: 5 MILLIGRAM, 4 TIMES/WK
     Route: 048
     Dates: start: 20160619, end: 20161116
  10. GLYBURIDE [Concomitant]
     Active Substance: GLYBURIDE
     Indication: Type 2 diabetes mellitus
     Dosage: 10 MILLIGRAM, QD
     Route: 048
     Dates: start: 20161109, end: 20170129
  11. IRON [Concomitant]
     Active Substance: IRON
     Indication: Anaemia
     Dosage: 300 MILLIGRAM, QD
     Route: 048
     Dates: start: 20160915, end: 20170303
  12. LABETALOL [Concomitant]
     Active Substance: LABETALOL\LABETALOL HYDROCHLORIDE
     Indication: Hypertension
     Dosage: 100 MILLIGRAM, BID
     Route: 048
     Dates: start: 20160814, end: 20161130
  13. LABETALOL [Concomitant]
     Active Substance: LABETALOL\LABETALOL HYDROCHLORIDE
     Dosage: 200 MILLIGRAM, BID
     Route: 048
     Dates: start: 20161201, end: 20170201
  14. LABETALOL [Concomitant]
     Active Substance: LABETALOL\LABETALOL HYDROCHLORIDE
     Dosage: 400 MILLIGRAM, BID
     Route: 048
     Dates: start: 20170202, end: 20170303
  15. LIPITOR [Concomitant]
     Active Substance: ATORVASTATIN CALCIUM
     Indication: Blood cholesterol increased
     Dosage: 20 MILLIGRAM, QD
     Route: 048
     Dates: start: 20160619, end: 20160813
  16. METFORMIN HYDROCHLORIDE [Concomitant]
     Active Substance: METFORMIN HYDROCHLORIDE
     Indication: Type 2 diabetes mellitus
     Dosage: 1000 MILLIGRAM, BID
     Route: 048
     Dates: start: 20160619, end: 20170303
  17. METHYLDOPA [Concomitant]
     Active Substance: METHYLDOPA
     Indication: Hypertension
     Dosage: 250 MILLIGRAM, BID
     Route: 048
     Dates: start: 20160814, end: 20170303
  18. NORVASC [Concomitant]
     Active Substance: AMLODIPINE BESYLATE
     Indication: Hypertension
     Dosage: 10 MILLIGRAM, QD
     Route: 048
     Dates: start: 20160619, end: 20160813
  19. NOVOLIN 70/30 [Concomitant]
     Active Substance: INSULIN HUMAN
     Indication: Diabetes mellitus
     Dosage: 60 UNIT, QD, INJECTED
     Dates: start: 20170130, end: 20170303
  20. NOVOLOG [Concomitant]
     Active Substance: INSULIN ASPART
     Indication: Diabetes mellitus
     Dosage: 14 UNIT, TID, INJECTED
     Dates: start: 20170130, end: 20170303
  21. PROMETHAZINE [Concomitant]
     Active Substance: PROMETHAZINE HYDROCHLORIDE
     Indication: Hypersensitivity
     Dosage: 25 MILLIGRAM, 6 TOTAL
     Route: 048
     Dates: start: 20160619, end: 20160809
  22. PROMETHAZINE [Concomitant]
     Active Substance: PROMETHAZINE HYDROCHLORIDE
     Indication: Nausea
     Dosage: 25 MILLIGRAM, 2 TOTAL
     Route: 048
     Dates: start: 20160830, end: 20161109
  23. ROBITUSSIN DM [Concomitant]
     Active Substance: DEXTROMETHORPHAN HYDROBROMIDE\GUAIFENESIN
     Dosage: 30 MILLILITER, QD
     Route: 048
     Dates: start: 20161215, end: 20170105
  24. TRICOR [Concomitant]
     Active Substance: FENOFIBRATE
     Indication: Blood cholesterol increased
     Dosage: 160 MILLIGRAM, QD
     Route: 048
     Dates: start: 20160619, end: 20160813
  25. VYVANSE [Concomitant]
     Active Substance: LISDEXAMFETAMINE DIMESYLATE
     Indication: Binge eating
     Dosage: 50 MILLIGRAM, QD
     Dates: start: 20160619, end: 20160813
  26. ZANTAC [Concomitant]
     Active Substance: RANITIDINE HYDROCHLORIDE
     Indication: Gastric pH decreased
     Dosage: 300 MILLIGRAM, QD
     Route: 048
     Dates: start: 20160619, end: 20170303
  27. ZYRTEC [Concomitant]
     Active Substance: CETIRIZINE HYDROCHLORIDE
     Indication: Hypersensitivity
     Dosage: 10 MILLIGRAM, BID
     Route: 048
     Dates: start: 20160619, end: 20170303
  28. TUMS [Concomitant]
     Active Substance: CALCIUM CARBONATE
     Indication: Dyspepsia
     Dosage: 2 PILL, 6 TOTAL
     Route: 048
     Dates: start: 20160619, end: 20160822
  29. TUMS [Concomitant]
     Active Substance: CALCIUM CARBONATE
     Indication: Gastrooesophageal reflux disease
     Dosage: 2 PILL, 4 TOTAL
     Route: 048
     Dates: start: 20160919, end: 20161109
  30. TUMS [Concomitant]
     Active Substance: CALCIUM CARBONATE
     Dosage: 4 PILL, QWK
     Route: 048
     Dates: start: 20161130, end: 20170303
  31. TYLENOL [Concomitant]
     Active Substance: ACETAMINOPHEN
     Indication: Pain
     Dosage: 500 MILLIGRAM, 4 TOTAL
     Route: 048
     Dates: start: 20160616, end: 20160822
  32. TYLENOL [Concomitant]
     Active Substance: ACETAMINOPHEN
     Indication: Headache
     Dosage: 1000 MILLIGRAM, 3 TOTAL
     Route: 048
     Dates: start: 20160919, end: 20161109

REACTIONS (2)
  - Maternal exposure during pregnancy [Unknown]
  - Delivery [Unknown]

NARRATIVE: CASE EVENT DATE: 20160101
